FAERS Safety Report 15127613 (Version 2)
Quarter: 2019Q2

REPORT INFORMATION
  Report Type: Spontaneous
  Country: US (occurrence: US)
  Receive Date: 20180710
  Receipt Date: 20190425
  Transmission Date: 20190711
  Serious: No
  Sender: FDA-Public Use
  Company Number: US-ALLERGAN-1768221US

PATIENT
  Sex: Male

DRUGS (1)
  1. TRELSTAR [Suspect]
     Active Substance: TRIPTORELIN PAMOATE
     Indication: PROSTATE CANCER
     Dosage: ONCE EVERY SIX MONTHS
     Route: 051
     Dates: start: 20171120, end: 20171120

REACTIONS (3)
  - Wrong technique in product usage process [Unknown]
  - Product use complaint [Unknown]
  - Medication error [Unknown]

NARRATIVE: CASE EVENT DATE: 20171120
